FAERS Safety Report 9695430 (Version 2)
Quarter: 2014Q1

REPORT INFORMATION
  Report Type: Spontaneous
  Country: US (occurrence: US)
  Receive Date: 20131119
  Receipt Date: 20140124
  Transmission Date: 20141002
  Serious: Yes (Death, Hospitalization, Other)
  Sender: FDA-Public Use
  Company Number: US-OTSUKA-US-2013-12119

PATIENT
  Age: 43 Year
  Sex: Female
  Weight: 102 kg

DRUGS (12)
  1. ABILIFY MAINTENA [Suspect]
     Indication: SCHIZOAFFECTIVE DISORDER
     Dosage: 400 MG MILLIGRAM(S), MONTHLY
     Route: 030
     Dates: start: 20130928
  2. ABILIFY [Concomitant]
     Indication: SCHIZOAFFECTIVE DISORDER
     Dosage: 10 MG MILLIGRAM(S), UNK
     Route: 048
     Dates: start: 20130529, end: 20131022
  3. RISPERDAL CONSTA [Concomitant]
     Indication: PRODUCT USED FOR UNKNOWN INDICATION
     Dosage: 25 MG MILLIGRAM(S), Q2WK
     Route: 030
  4. RISPERDAL [Concomitant]
     Indication: PRODUCT USED FOR UNKNOWN INDICATION
     Dosage: 1 MG MILLIGRAM(S), BID
  5. TOPAMAX [Concomitant]
     Indication: CONVULSION PROPHYLAXIS
     Dosage: 100 MG MILLIGRAM(S), BID
  6. TOPAMAX [Concomitant]
     Indication: WEIGHT CONTROL
     Dosage: 200 MG MILLIGRAM(S), BID
  7. DEPAKOTE [Concomitant]
     Indication: PRODUCT USED FOR UNKNOWN INDICATION
     Dosage: 750 MG MILLIGRAM(S), HS
     Dates: end: 20130313
  8. THORAZINE [Concomitant]
     Indication: PRODUCT USED FOR UNKNOWN INDICATION
  9. IBUPROFEN [Concomitant]
  10. TYLENOL [Concomitant]
  11. TESSALON [Concomitant]
  12. ZOVIRAX [Concomitant]

REACTIONS (8)
  - Death [Fatal]
  - Depressed level of consciousness [Unknown]
  - Tachycardia [Unknown]
  - Blood glucose increased [Unknown]
  - Psychotic disorder [Unknown]
  - Fall [Unknown]
  - Agitation [Unknown]
  - Gait disturbance [Recovered/Resolved]
